FAERS Safety Report 14226664 (Version 1)
Quarter: 2017Q4

REPORT INFORMATION
  Report Type: Spontaneous
  Country: FR (occurrence: GB)
  Receive Date: 20171127
  Receipt Date: 20171127
  Transmission Date: 20180321
  Serious: Yes (Other)
  Sender: FDA-Public Use
  Company Number: GB-B. BRAUN MEDICAL INC.-2036046

PATIENT
  Age: 25 Day
  Sex: Male

DRUGS (3)
  1. CEFOTAXIME [Concomitant]
     Active Substance: CEFOTAXIME SODIUM
     Dates: start: 20161011, end: 20161014
  2. AMIKACINE MYLAN [Concomitant]
     Active Substance: AMIKACIN
     Dates: start: 20161011, end: 20161014
  3. METRONIDAZOLE. [Suspect]
     Active Substance: METRONIDAZOLE
     Indication: ANTIBIOTIC THERAPY
     Dates: start: 20161010, end: 20161013

REACTIONS (1)
  - Neutropenia [None]
